FAERS Safety Report 6100363-5 (Version None)
Quarter: 2009Q1

REPORT INFORMATION
  Report Type: 
  Country: None (occurrence: None)
  Receive Date: 20090227
  Receipt Date: 20090227
  Transmission Date: 20090719
  Serious: Yes (Hospitalization)
  Sender: FDA-Public Use
  Company Number: None

PATIENT
  Sex: Female
  Weight: 82.37 kg

DRUGS (2)
  1. CARBOPLATIN [Suspect]
     Dosage: 715 MG
     Dates: end: 20080609
  2. TAXOL [Suspect]
     Dosage: 338 MG
     Dates: end: 20080609

REACTIONS (15)
  - ABDOMINAL DISTENSION [None]
  - ABDOMINAL PAIN [None]
  - ACUTE MYOCARDIAL INFARCTION [None]
  - ARTERIAL THROMBOSIS [None]
  - DECREASED APPETITE [None]
  - DEEP VEIN THROMBOSIS [None]
  - DEHYDRATION [None]
  - DIARRHOEA [None]
  - FAECES DISCOLOURED [None]
  - FATIGUE [None]
  - MALLORY-WEISS SYNDROME [None]
  - NAUSEA [None]
  - OCCULT BLOOD POSITIVE [None]
  - STRESS CARDIOMYOPATHY [None]
  - VOMITING [None]
